FAERS Safety Report 5899092-2 (Version None)
Quarter: 2008Q3

REPORT INFORMATION
  Report Type: 
  Country: None (occurrence: None)
  Receive Date: 20080925
  Receipt Date: 20080915
  Transmission Date: 20090109
  Serious: Yes (Life-Threatening, Hospitalization)
  Sender: FDA-Public Use
  Company Number: IE-ELI_LILLY_AND_COMPANY-IE200808006385

PATIENT
  Sex: Male
  Weight: 90 kg

DRUGS (6)
  1. ZYPREXA [Suspect]
     Indication: DEPRESSION
     Dosage: 2.5 MG, UNK
     Route: 048
     Dates: end: 20080817
  2. NARDIL [Concomitant]
     Dosage: 30 MG, 2/D
     Route: 048
     Dates: end: 20080828
  3. SERETIDE [Concomitant]
     Dosage: UNK, 2/D
     Route: 055
  4. LANSOPRAZOLE [Concomitant]
     Dosage: 30 MG, UNK
     Route: 048
  5. WARFARIN SODIUM [Concomitant]
  6. HEPARIN [Concomitant]
     Indication: PREMEDICATION

REACTIONS (2)
  - NEPHRECTOMY [None]
  - PULMONARY EMBOLISM [None]
